FAERS Safety Report 20739624 (Version 1)
Quarter: 2022Q2

REPORT INFORMATION
  Report Type: Spontaneous
  Country: US (occurrence: None)
  Receive Date: 20220421
  Receipt Date: 20220421
  Transmission Date: 20220721
  Serious: Yes (Disabling)
  Sender: FDA-Public Use
  Company Number: None

PATIENT
  Age: 72 Year
  Sex: Male
  Weight: 138.15 kg

DRUGS (1)
  1. CEPHALEXIN [Suspect]
     Active Substance: CEPHALEXIN
     Indication: Cellulitis
     Dosage: FREQUENCY : 4 TIMES A DAY;?
     Route: 048

REACTIONS (5)
  - Condition aggravated [None]
  - Tendon rupture [None]
  - Limb injury [None]
  - Joint injury [None]
  - Gout [None]

NARRATIVE: CASE EVENT DATE: 20200726
